FAERS Safety Report 8246629-4 (Version None)
Quarter: 2012Q1

REPORT INFORMATION
  Report Type: 
  Country: None (occurrence: None)
  Receive Date: 20120330
  Receipt Date: 20120329
  Transmission Date: 20120608
  Serious: Yes (Other)
  Sender: FDA-Public Use
  Company Number: ES-PFIZER INC-2012080134

PATIENT
  Age: 42 Year
  Sex: Female

DRUGS (1)
  1. VARENICLINE TARTRATE [Suspect]
     Indication: SMOKING CESSATION THERAPY
     Dosage: 2 MG, 1X/DAY
     Route: 048
     Dates: start: 20110401, end: 20110701

REACTIONS (5)
  - HYPOTHYROIDISM [None]
  - ABNORMAL WEIGHT GAIN [None]
  - TACHYCARDIA [None]
  - DYSURIA [None]
  - INSOMNIA [None]
